FAERS Safety Report 4480595-2 (Version None)
Quarter: 2004Q4

REPORT INFORMATION
  Report Type: 
  Country: None (occurrence: None)
  Receive Date: 20041019
  Receipt Date: 20041006
  Transmission Date: 20050328
  Serious: Yes (Hospitalization)
  Sender: FDA-Public Use
  Company Number: 2004237487FR

PATIENT
  Age: 57 Year
  Sex: Male

DRUGS (8)
  1. ALDACTONE [Suspect]
     Indication: CARDIAC FAILURE
     Dosage: ORAL
     Route: 048
     Dates: start: 20040710, end: 20040804
  2. ALDALIX           (FUROSEMIDE, SPIRONOLACTONE) [Suspect]
     Indication: CARDIAC FAILURE
     Dosage: ORAL
     Route: 048
     Dates: start: 20040710
  3. POLIFLU            (ACETYLSALICYLATE LYSINE) [Suspect]
     Indication: CARDIAC FAILURE
     Dosage: ORAL
     Route: 048
     Dates: start: 20040710
  4. COVERSYL                (PERINDOPRIL) [Suspect]
     Indication: CARDIAC FAILURE
     Dosage: ORAL
     Route: 048
     Dates: start: 20040710, end: 20040804
  5. BISOPROLOL FUMARATE [Suspect]
     Indication: CARDIAC FAILURE
     Dosage: ORAL
     Route: 048
     Dates: start: 20040710
  6. CORDARONE [Suspect]
     Indication: CARDIAC FAILURE
     Dosage: 200 MG, ORAL
     Route: 048
     Dates: start: 20040710, end: 20040817
  7. GLUCOPHAGE [Concomitant]
  8. DIAMICRON (GLICLAZIDE) [Concomitant]

REACTIONS (2)
  - DERMATITIS BULLOUS [None]
  - PEMPHIGOID [None]
